FAERS Safety Report 10041012 (Version 1)
Quarter: 2014Q1

REPORT INFORMATION
  Report Type: Spontaneous
  Country: GB (occurrence: GB)
  Receive Date: 20140327
  Receipt Date: 20140327
  Transmission Date: 20141002
  Serious: Yes (Other)
  Sender: FDA-Public Use
  Company Number: GB-JNJFOC-20140316912

PATIENT
  Age: 44 Year
  Sex: Female
  Weight: 82 kg

DRUGS (1)
  1. TOPIRAMATE [Suspect]
     Indication: PRODUCT USED FOR UNKNOWN INDICATION
     Route: 065

REACTIONS (3)
  - Onychomadesis [Recovered/Resolved]
  - Alopecia [Recovered/Resolved]
  - Onychoclasis [Recovered/Resolved]
